FAERS Safety Report 17723081 (Version 1)
Quarter: 2020Q2

REPORT INFORMATION
  Report Type: Spontaneous
  Country: CA (occurrence: CA)
  Receive Date: 20200429
  Receipt Date: 20200429
  Transmission Date: 20200714
  Serious: Yes (Other)
  Sender: FDA-Public Use
  Company Number: CA-SAMSUNG BIOEPIS-SB-2020-14532

PATIENT
  Age: 28 Year
  Sex: Male
  Weight: 133 kg

DRUGS (3)
  1. SIMPONI [Concomitant]
     Active Substance: GOLIMUMAB
     Indication: PRODUCT USED FOR UNKNOWN INDICATION
     Dosage: UNKNOWN, SOLUTION SUBCUTANEOUS
     Route: 058
  2. INFLIXIMAB [Suspect]
     Active Substance: INFLIXIMAB
     Indication: ANKYLOSING SPONDYLITIS
     Route: 042
  3. DOXYTAB [DOXYCYCLINE HYDROCHLORIDE] [Concomitant]
     Indication: PROPHYLAXIS
     Dosage: UNKNOWN
     Route: 065

REACTIONS (7)
  - Off label use [Unknown]
  - Intentional product use issue [Unknown]
  - Product use issue [Unknown]
  - Condition aggravated [Unknown]
  - Drug specific antibody present [Unknown]
  - Blood pressure fluctuation [Unknown]
  - Renal colic [Unknown]
